FAERS Safety Report 12428940 (Version 4)
Quarter: 2016Q4

REPORT INFORMATION
  Report Type: Report from Study
  Country: US (occurrence: US)
  Receive Date: 20160602
  Receipt Date: 20161222
  Transmission Date: 20170207
  Serious: Yes (Hospitalization)
  Sender: FDA-Public Use
  Company Number: US-ACTELION-A-US2016-134645

PATIENT
  Age: 58 Year
  Sex: Female

DRUGS (6)
  1. REVATIO [Concomitant]
     Active Substance: SILDENAFIL CITRATE
  2. ADEMPAS [Concomitant]
     Active Substance: RIOCIGUAT
  3. COUMADIN [Concomitant]
     Active Substance: WARFARIN SODIUM
  4. TRACLEER [Suspect]
     Active Substance: BOSENTAN
     Indication: PULMONARY ARTERIAL HYPERTENSION
     Dosage: 125 MG, BID
     Route: 048
     Dates: start: 20100422
  5. TYVASO [Concomitant]
     Active Substance: TREPROSTINIL
  6. ELIQUIS [Concomitant]
     Active Substance: APIXABAN

REACTIONS (13)
  - Cardiac failure [Unknown]
  - Depression [Unknown]
  - Confusional state [Unknown]
  - Anxiety [Unknown]
  - Cardiac failure congestive [Unknown]
  - Cardiac disorder [Unknown]
  - Pulmonary arterial hypertension [Unknown]
  - Viral infection [Unknown]
  - Fluid retention [Unknown]
  - Atrial fibrillation [Unknown]
  - Heart rate irregular [Unknown]
  - Cardiac pacemaker insertion [Unknown]
  - Dyspnoea [Unknown]

NARRATIVE: CASE EVENT DATE: 20161025
